FAERS Safety Report 5488017-X (Version None)
Quarter: 2007Q4

REPORT INFORMATION
  Report Type: 
  Country: None (occurrence: None)
  Receive Date: 20071012
  Receipt Date: 20071012
  Transmission Date: 20080405
  Serious: No
  Sender: FDA-Public Use
  Company Number: None

PATIENT
  Age: 64 Year
  Sex: Male
  Weight: 79.3795 kg

DRUGS (1)
  1. TRIAMTERENE  37.5MG/HJCTZ25MG [Suspect]
     Indication: JOINT SWELLING
     Dosage: 1 DAILY PO
     Route: 048
     Dates: start: 20071007, end: 20071013

REACTIONS (2)
  - FATIGUE [None]
  - STOMACH DISCOMFORT [None]
